FAERS Safety Report 8048657-0 (Version None)
Quarter: 2012Q1

REPORT INFORMATION
  Report Type: 
  Country: None (occurrence: None)
  Receive Date: 20120110
  Receipt Date: 20111118
  Transmission Date: 20120608
  Serious: Yes (Life-Threatening, Hospitalization)
  Sender: FDA-Public Use
  Company Number: PI-06269

PATIENT
  Age: 34 Year
  Sex: Male
  Weight: 70 kg

DRUGS (3)
  1. CHLORAPREP [Suspect]
     Indication: THERAPEUTIC SKIN CARE TOPICAL
     Dosage: 3ML, ONCE, TOPICAL
     Route: 061
     Dates: start: 20111108
  2. CHLORAPREP [Suspect]
     Indication: PREOPERATIVE CARE
     Dosage: 3ML, ONCE, TOPICAL
     Route: 061
     Dates: start: 20111108
  3. IV ANAESTHESIA (INCLUDING FENTANYL, ATRACURIUM, ONDANSETRON, PROPOFOL) [Concomitant]

REACTIONS (1)
  - ANAPHYLACTIC REACTION [None]
